FAERS Safety Report 14988720 (Version 1)
Quarter: 2018Q2

REPORT INFORMATION
  Report Type: Spontaneous
  Country: US (occurrence: US)
  Receive Date: 20180608
  Receipt Date: 20180608
  Transmission Date: 20180711
  Serious: No
  Sender: FDA-Public Use
  Company Number: US-TEVA-2018-US-900771

PATIENT
  Age: 58 Year
  Sex: Female

DRUGS (1)
  1. ATENOLOL. [Suspect]
     Active Substance: ATENOLOL
     Indication: HEART RATE ABNORMAL
     Dosage: 25 MILLIGRAM DAILY;
     Route: 065

REACTIONS (5)
  - Wrong technique in product usage process [Unknown]
  - Drug effect incomplete [Unknown]
  - Heart rate increased [Unknown]
  - Hypotension [Unknown]
  - Product use issue [Unknown]
